FAERS Safety Report 5305249-1 (Version None)
Quarter: 2007Q2

REPORT INFORMATION
  Report Type: 
  Country: None (occurrence: None)
  Receive Date: 20070424
  Receipt Date: 20070413
  Transmission Date: 20071010
  Serious: Yes (Hospitalization)
  Sender: FDA-Public Use
  Company Number: SE-JNJFOC-20070403004

PATIENT
  Age: 48 Year
  Sex: Female

DRUGS (9)
  1. REMICADE [Suspect]
     Route: 042
  2. REMICADE [Suspect]
     Indication: COLITIS ULCERATIVE
     Route: 042
  3. AZATHIPRINE [Suspect]
     Indication: COLITIS ULCERATIVE
     Route: 048
  4. PENTASA [Concomitant]
  5. OMEPRAZOLE [Concomitant]
  6. PRED-CLYSMA [Concomitant]
  7. PREDNISOLONE [Concomitant]
  8. CALCICHEW-D3 [Concomitant]
  9. METOPROLOL GEA RETARD [Concomitant]

REACTIONS (2)
  - CYTOMEGALOVIRUS INFECTION [None]
  - INTERSTITIAL LUNG DISEASE [None]
